FAERS Safety Report 7896624-X (Version None)
Quarter: 2011Q4

REPORT INFORMATION
  Report Type: 
  Country: None (occurrence: None)
  Receive Date: 20111104
  Receipt Date: 20111104
  Transmission Date: 20120403
  Serious: No
  Sender: FDA-Public Use
  Company Number: None

PATIENT
  Age: 73 Year
  Sex: Female
  Weight: 77.1115 kg

DRUGS (2)
  1. LODINE [Suspect]
     Indication: JOINT EFFUSION
     Dosage: 1 2XDAY
     Dates: start: 20110826, end: 20110829
  2. LODINE [Suspect]
     Indication: ARTHRITIS
     Dosage: 1 2XDAY
     Dates: start: 20110826, end: 20110829

REACTIONS (3)
  - ERYTHEMA [None]
  - HOT FLUSH [None]
  - PARAESTHESIA [None]
